FAERS Safety Report 5159705-X (Version None)
Quarter: 2006Q4

REPORT INFORMATION
  Report Type: 
  Country: None (occurrence: None)
  Receive Date: 20061129
  Receipt Date: 20060921
  Transmission Date: 20070319
  Serious: Yes (Hospitalization)
  Sender: FDA-Public Use
  Company Number: JP-AVENTIS-200619868GDDC

PATIENT
  Age: 85 Year
  Sex: Female

DRUGS (6)
  1. EUGLUCON [Suspect]
     Indication: DIABETES MELLITUS
     Route: 048
     Dates: start: 20000727, end: 20060912
  2. CALBLOCK [Concomitant]
  3. ENALAPRIL MALEATE [Concomitant]
  4. VOGLIBOSE [Concomitant]
  5. TERAZOSIN HCL [Concomitant]
  6. METFORMIN HCL [Concomitant]
     Dates: end: 20060912

REACTIONS (2)
  - HYPOGLYCAEMIA [None]
  - HYPOGLYCAEMIC COMA [None]
